FAERS Safety Report 17757157 (Version 3)
Quarter: 2020Q2

REPORT INFORMATION
  Report Type: Spontaneous
  Country: US (occurrence: US)
  Receive Date: 20200507
  Receipt Date: 20200629
  Transmission Date: 20200714
  Serious: Yes (Life-Threatening, Hospitalization, Other)
  Sender: FDA-Public Use
  Company Number: US-GLENMARK PHARMACEUTICALS-2020GMK047651

PATIENT
  Age: 63 Year
  Sex: Female

DRUGS (3)
  1. LINEZOLID. [Suspect]
     Active Substance: LINEZOLID
     Indication: ANTIBIOTIC THERAPY
     Dosage: 600 MILLIGRAM, BID
     Route: 048
  2. FENTANYL. [Interacting]
     Active Substance: FENTANYL
     Indication: BACK PAIN
     Dosage: UNK, INADVERTENTLY CONTINUED
     Route: 062
  3. LINEZOLID. [Interacting]
     Active Substance: LINEZOLID
     Indication: CELLULITIS STAPHYLOCOCCAL

REACTIONS (3)
  - Drug interaction [Unknown]
  - Accidental exposure to product [Unknown]
  - Serotonin syndrome [Recovered/Resolved]
